FAERS Safety Report 24132630 (Version 2)
Quarter: 2024Q3

REPORT INFORMATION
  Report Type: Spontaneous
  Country: US (occurrence: US)
  Receive Date: 20240724
  Receipt Date: 20240806
  Transmission Date: 20241017
  Serious: Yes (Hospitalization, Other)
  Sender: BRISTOL MYERS SQUIBB
  Company Number: US-BRISTOL-MYERS SQUIBB COMPANY-2024-115715

PATIENT
  Age: 87 Year
  Sex: Male
  Weight: 79.83 kg

DRUGS (6)
  1. REVLIMID [Suspect]
     Active Substance: LENALIDOMIDE
     Indication: Non-Hodgkin^s lymphoma
     Dosage: DOSE : 5 MG;     FREQ : ONCE DAILY FOR 14 DAYS AND 14 DAYS OFF
     Route: 048
     Dates: start: 20240624, end: 20240627
  2. REVLIMID [Suspect]
     Active Substance: LENALIDOMIDE
     Indication: Central nervous system lymphoma
  3. ELIQUIS [Concomitant]
     Active Substance: APIXABAN
     Indication: Product used for unknown indication
  4. MOTRIGIN [Concomitant]
     Indication: Product used for unknown indication
  5. SODIUM [Concomitant]
     Active Substance: SODIUM
     Indication: Product used for unknown indication
  6. VITAMIN D3 [Concomitant]
     Active Substance: CHOLECALCIFEROL
     Indication: Product used for unknown indication

REACTIONS (9)
  - Fatigue [Not Recovered/Not Resolved]
  - Off label use [Unknown]
  - Urinary tract infection [Not Recovered/Not Resolved]
  - Blood sodium decreased [Not Recovered/Not Resolved]
  - Hypersomnia [Not Recovered/Not Resolved]
  - Chills [Not Recovered/Not Resolved]
  - Muscle rigidity [Unknown]
  - Delirium [Unknown]
  - Dysstasia [Unknown]
